FAERS Safety Report 18747489 (Version 1)
Quarter: 2021Q1

REPORT INFORMATION
  Report Type: Spontaneous
  Country: CN (occurrence: CN)
  Receive Date: 20210115
  Receipt Date: 20210115
  Transmission Date: 20210419
  Serious: Yes (Other)
  Sender: FDA-Public Use
  Company Number: CN-ASTRAZENECA-2021A004331

PATIENT
  Age: 19570 Day
  Sex: Female
  Weight: 60 kg

DRUGS (1)
  1. BUDESONIDE SUSPENSION [Suspect]
     Active Substance: BUDESONIDE
     Indication: PHARYNGEAL OEDEMA
     Route: 055
     Dates: start: 20201214, end: 20201214

REACTIONS (1)
  - Asphyxia [Recovering/Resolving]

NARRATIVE: CASE EVENT DATE: 20201214
